FAERS Safety Report 15239649 (Version 2)
Quarter: 2024Q3

REPORT INFORMATION
  Report Type: Spontaneous
  Country: IE (occurrence: IE)
  Receive Date: 20180803
  Receipt Date: 20240820
  Transmission Date: 20241017
  Serious: Yes (Hospitalization, Other)
  Sender: NOVARTIS
  Company Number: PHHY2016IE120240

PATIENT
  Age: 46 Year
  Sex: Male

DRUGS (7)
  1. NEORAL [Interacting]
     Active Substance: CYCLOSPORINE
     Indication: Renal transplant
     Dosage: UNK
     Route: 065
  2. NEORAL [Interacting]
     Active Substance: CYCLOSPORINE
     Indication: Immunosuppressant drug therapy
  3. COLCHICINE [Interacting]
     Active Substance: COLCHICINE
     Indication: Gouty tophus
     Dosage: 500 UG, QD FOR ATLEAST 6 MONTHS
     Route: 065
  4. TEMAZEPAM [Concomitant]
     Active Substance: TEMAZEPAM
     Indication: Product used for unknown indication
     Dosage: UNK
     Route: 065
  5. AZATHIOPRINE [Concomitant]
     Active Substance: AZATHIOPRINE
     Indication: Product used for unknown indication
     Dosage: UNK
     Route: 065
  6. RANITIDINE [Concomitant]
     Active Substance: RANITIDINE
     Indication: Product used for unknown indication
     Dosage: UNK
     Route: 065
  7. PREDNISOLONE [Concomitant]
     Active Substance: PREDNISOLONE
     Indication: Product used for unknown indication
     Dosage: 7.5 MG, QD
     Route: 065

REACTIONS (7)
  - Neuromyopathy [Recovering/Resolving]
  - Nervous system disorder [Unknown]
  - Muscle atrophy [Unknown]
  - Hypotonia [Unknown]
  - Areflexia [Unknown]
  - Toxicity to various agents [Unknown]
  - Drug interaction [Recovering/Resolving]
